FAERS Safety Report 7594082-6 (Version None)
Quarter: 2011Q3

REPORT INFORMATION
  Report Type: 
  Country: None (occurrence: None)
  Receive Date: 20110706
  Receipt Date: 20110701
  Transmission Date: 20111222
  Serious: Yes (Other)
  Sender: FDA-Public Use
  Company Number: US-PFIZER INC-2011148110

PATIENT
  Sex: Female
  Weight: 102 kg

DRUGS (5)
  1. EFFEXOR XR [Suspect]
     Indication: DEPRESSION
  2. EFFEXOR XR [Suspect]
     Indication: HOT FLUSH
     Dosage: UNK
     Route: 048
     Dates: start: 20061201
  3. BLACK COHOSH [Concomitant]
     Dosage: UNK
  4. TAMOXIFEN [Concomitant]
     Dosage: UNK
  5. SYNTHROID [Concomitant]
     Indication: HYPOTHYROIDISM
     Dosage: UNK

REACTIONS (4)
  - PALPITATIONS [None]
  - MOOD ALTERED [None]
  - DRUG DEPENDENCE [None]
  - DEPRESSION [None]
